FAERS Safety Report 6144488-7 (Version None)
Quarter: 2009Q2

REPORT INFORMATION
  Report Type: 
  Country: None (occurrence: None)
  Receive Date: 20090406
  Receipt Date: 20090326
  Transmission Date: 20091009
  Serious: Yes (Hospitalization, Disabling, Other)
  Sender: FDA-Public Use
  Company Number: US-BAXTER-2008BH008557

PATIENT
  Age: 78 Year
  Sex: Male
  Weight: 78 kg

DRUGS (14)
  1. HEPARIN SODIUM INJECTION [Suspect]
     Indication: AORTIC VALVE REPLACEMENT
     Route: 042
     Dates: start: 20050215, end: 20050215
  2. HEPARIN SODIUM INJECTION [Suspect]
     Indication: CORONARY ARTERY BYPASS
     Route: 042
     Dates: start: 20050215, end: 20050215
  3. HEPARIN SODIUM INJECTION [Suspect]
     Route: 042
     Dates: start: 20050215, end: 20050215
  4. HEPARIN SODIUM INJECTION [Suspect]
     Route: 042
     Dates: start: 20050215, end: 20050215
  5. HEPARIN SODIUM INJECTION [Suspect]
     Route: 042
     Dates: start: 20050215, end: 20050215
  6. HEPARIN SODIUM INJECTION [Suspect]
     Route: 042
     Dates: start: 20050215, end: 20050215
  7. HEPARIN SODIUM INJECTION [Suspect]
     Route: 042
     Dates: start: 20050215, end: 20050215
  8. HEPARIN SODIUM INJECTION [Suspect]
     Route: 042
     Dates: start: 20050215, end: 20050215
  9. LASIX [Concomitant]
     Indication: DRUG USE FOR UNKNOWN INDICATION
     Route: 048
  10. AMIODARONE HCL [Concomitant]
     Indication: DRUG USE FOR UNKNOWN INDICATION
     Route: 048
  11. COUMADIN [Concomitant]
     Indication: DRUG USE FOR UNKNOWN INDICATION
     Route: 065
  12. SIMVASTATIN [Concomitant]
     Indication: DRUG USE FOR UNKNOWN INDICATION
     Route: 048
  13. REQUIP [Concomitant]
     Indication: DRUG USE FOR UNKNOWN INDICATION
     Route: 048
  14. VIOXX [Concomitant]
     Indication: DRUG USE FOR UNKNOWN INDICATION
     Route: 048

REACTIONS (6)
  - HEPARIN-INDUCED THROMBOCYTOPENIA [None]
  - HYPOTENSION [None]
  - MULTI-ORGAN FAILURE [None]
  - NAUSEA [None]
  - RENAL FAILURE ACUTE [None]
  - VOMITING [None]
